FAERS Safety Report 5285792-4 (Version None)
Quarter: 2007Q1

REPORT INFORMATION
  Report Type: 
  Country: None (occurrence: None)
  Receive Date: 20070116
  Receipt Date: 20060915
  Transmission Date: 20070707
  Serious: Yes (Hospitalization)
  Sender: FDA-Public Use
  Company Number: 2006SP003300

PATIENT
  Age: 37 Year
  Sex: Female
  Weight: 90.7194 kg

DRUGS (4)
  1. LUNESTA [Suspect]
     Indication: INSOMNIA
     Dosage: 3 MG;PRN;ORAL
     Route: 048
     Dates: start: 20060401
  2. KLONOPIN [Concomitant]
  3. ORTHO-NOVUM 7/7/7-21 [Concomitant]
  4. PROZAC [Concomitant]

REACTIONS (2)
  - NAUSEA [None]
  - VOMITING [None]
